FAERS Safety Report 23051127 (Version 3)
Quarter: 2024Q1

REPORT INFORMATION
  Report Type: Spontaneous
  Country: US (occurrence: US)
  Receive Date: 20231010
  Receipt Date: 20240227
  Transmission Date: 20240410
  Serious: Yes (Disabling, Other)
  Sender: FDA-Public Use
  Company Number: US-SA-SAC20231006001214

PATIENT
  Age: 56 Year
  Sex: Female

DRUGS (3)
  1. DUPIXENT [Suspect]
     Active Substance: DUPILUMAB
     Indication: Neurodermatitis
     Dosage: 300 MG, 1X
     Route: 058
     Dates: start: 20230909, end: 20230909
  2. DUPIXENT [Suspect]
     Active Substance: DUPILUMAB
     Dosage: 300 MG, 1X
     Route: 058
     Dates: start: 20230912, end: 20230912
  3. DUPIXENT [Suspect]
     Active Substance: DUPILUMAB
     Dosage: 300 MG, QOW, INJECT 1 SYRINGE ON DAY 15, THEN 1 SYRINGE EVERY 14 DAYS THEREAFTER
     Route: 058
     Dates: start: 20230926

REACTIONS (18)
  - Loss of personal independence in daily activities [Unknown]
  - Myocardial infarction [Unknown]
  - Diabetes mellitus [Unknown]
  - Swelling [Recovered/Resolved]
  - Sciatica [Recovered/Resolved]
  - Skin lesion [Recovered/Resolved]
  - Nasal congestion [Unknown]
  - Back pain [Unknown]
  - Psoriasis [Unknown]
  - Hot flush [Unknown]
  - Condition aggravated [Unknown]
  - Nausea [Unknown]
  - Hyperhidrosis [Unknown]
  - Condition aggravated [Unknown]
  - Gait disturbance [Unknown]
  - Neurodermatitis [Unknown]
  - Therapeutic response delayed [Unknown]
  - Incorrect dose administered [Unknown]

NARRATIVE: CASE EVENT DATE: 20230101
